FAERS Safety Report 10179265 (Version 1)
Quarter: 2014Q2

REPORT INFORMATION
  Report Type: Spontaneous
  Country: US (occurrence: US)
  Receive Date: 20140519
  Receipt Date: 20140519
  Transmission Date: 20141212
  Serious: No
  Sender: FDA-Public Use
  Company Number: US-ENDO PHARMACEUTICALS INC.-AMLO20140008

PATIENT
  Age: 68 Year
  Sex: Female

DRUGS (3)
  1. AMLODIPINE BESYLATE TABLETS 5MG [Suspect]
     Indication: HYPERTENSION
     Route: 048
     Dates: start: 20140310
  2. LISINOPRIL TABLETS 40MG [Concomitant]
     Indication: HYPERTENSION
     Route: 048
  3. HYDROCHLOROTHIAZIDE TABLETS 25MG [Concomitant]
     Indication: HYPERTENSION
     Route: 048

REACTIONS (5)
  - Headache [Not Recovered/Not Resolved]
  - Abdominal pain upper [Recovered/Resolved]
  - Muscle spasms [Recovered/Resolved]
  - Asthenia [Recovered/Resolved]
  - Nausea [Not Recovered/Not Resolved]
